FAERS Safety Report 15430927 (Version 5)
Quarter: 2018Q4

REPORT INFORMATION
  Report Type: Spontaneous
  Country: US (occurrence: US)
  Receive Date: 20180926
  Receipt Date: 20181115
  Transmission Date: 20190204
  Serious: Yes (Other)
  Sender: FDA-Public Use
  Company Number: US-TEVA-2018-US-956632

PATIENT
  Age: 56 Year
  Sex: Female

DRUGS (2)
  1. DESVENLAFAXINE SODIUM [Suspect]
     Active Substance: DESVENLAFAXINE
     Indication: DEPRESSION
     Dosage: DOSE STRENGTH:  50
     Route: 065
     Dates: start: 20180817
  2. DESVENLAFAXINE SODIUM [Suspect]
     Active Substance: DESVENLAFAXINE
     Dosage: DOSE STRENGTH:  50; CUT THE TABLETS IN HALF
     Route: 065
     Dates: start: 20180908, end: 20180910

REACTIONS (5)
  - Suicidal behaviour [Not Recovered/Not Resolved]
  - Aggression [Unknown]
  - Confusional state [Unknown]
  - Product prescribing error [Unknown]
  - Vaginal haemorrhage [Unknown]

NARRATIVE: CASE EVENT DATE: 201808
